FAERS Safety Report 6292797-3 (Version None)
Quarter: 2009Q3

REPORT INFORMATION
  Report Type: 
  Country: None (occurrence: None)
  Receive Date: 20090731
  Receipt Date: 20090722
  Transmission Date: 20100115
  Serious: Yes (Hospitalization)
  Sender: FDA-Public Use
  Company Number: FR-GENENTECH-261864

PATIENT
  Age: 67 Year
  Sex: Female

DRUGS (10)
  1. RITUXIMAB [Suspect]
     Indication: B-CELL LYMPHOMA
     Dosage: 600 MG, UNKNOWN
     Route: 042
     Dates: start: 20070517
  2. RITUXIMAB [Suspect]
     Dosage: 600 MG, UNKNOWN
     Route: 042
     Dates: start: 20070613
  3. RITUXIMAB [Suspect]
     Dosage: 600 MG, UNKNOWN
     Route: 042
     Dates: start: 20070801
  4. RITUXIMAB [Suspect]
     Dosage: 665 MG, UNKNOWN
     Route: 042
     Dates: start: 20071226
  5. RITUXIMAB [Suspect]
     Dosage: 600 MG, UNKNOWN
     Route: 042
     Dates: start: 20080507
  6. CYCLOPHOSPHAMIDE [Concomitant]
     Indication: DRUG USE FOR UNKNOWN INDICATION
     Dates: start: 20070517
  7. FLUDARABINE PHOSPHATE [Concomitant]
     Indication: DRUG USE FOR UNKNOWN INDICATION
     Dates: start: 20070517
  8. LEVOTHYROXINE SODIUM [Concomitant]
     Indication: HYPOTHYROIDISM
  9. PYOSTACINE [Concomitant]
     Indication: EAR PAIN
     Dosage: UNK
     Dates: start: 20080223, end: 20080229
  10. SOLUPRED [Concomitant]
     Indication: EAR PAIN
     Dosage: UNK
     Dates: start: 20080223, end: 20080229

REACTIONS (4)
  - BALANCE DISORDER [None]
  - ENCEPHALITIS HERPES [None]
  - HERPES ZOSTER [None]
  - URINARY TRACT INFECTION [None]
